FAERS Safety Report 5157146-2 (Version None)
Quarter: 2006Q4

REPORT INFORMATION
  Report Type: 
  Country: None (occurrence: None)
  Receive Date: 20061127
  Receipt Date: 20061115
  Transmission Date: 20070319
  Serious: Yes (Other)
  Sender: FDA-Public Use
  Company Number: PHHO2006AR19625

PATIENT
  Age: 56 Year
  Sex: Female

DRUGS (1)
  1. ZELMAC / HTF 919A [Suspect]
     Indication: IRRITABLE BOWEL SYNDROME
     Dosage: 6 MG,

REACTIONS (5)
  - ABDOMINAL PAIN UPPER [None]
  - IRRITABLE BOWEL SYNDROME [None]
  - POLYP [None]
  - POLYPECTOMY [None]
  - SURGERY [None]
